FAERS Safety Report 7914378-5 (Version None)
Quarter: 2011Q4

REPORT INFORMATION
  Report Type: 
  Country: None (occurrence: None)
  Receive Date: 20111115
  Receipt Date: 20111102
  Transmission Date: 20120403
  Serious: Yes (Hospitalization, Other)
  Sender: FDA-Public Use
  Company Number: US-ELI_LILLY_AND_COMPANY-US201109004359

PATIENT
  Age: 58 Year
  Sex: Male
  Weight: 91 kg

DRUGS (5)
  1. ZANTAC [Concomitant]
  2. FORTEO [Suspect]
     Dosage: 20 UG, QD
     Route: 058
  3. CAMPRAL [Concomitant]
  4. HYDROCHLOROTHIAZIDE [Concomitant]
  5. NADOLOL [Concomitant]

REACTIONS (5)
  - OSTEOMYELITIS [None]
  - FALL [None]
  - IMPAIRED HEALING [None]
  - ANKLE FRACTURE [None]
  - BLISTER INFECTED [None]
